FAERS Safety Report 19927772 (Version 1)
Quarter: 2021Q4

REPORT INFORMATION
  Report Type: Spontaneous
  Country: US (occurrence: US)
  Receive Date: 20211007
  Receipt Date: 20211007
  Transmission Date: 20220304
  Serious: No
  Sender: FDA-Public Use
  Company Number: US-INDIVIOR US-INDV-129760-2021

PATIENT
  Age: 23 Year
  Sex: Female

DRUGS (5)
  1. SUBLOCADE [Suspect]
     Active Substance: BUPRENORPHINE
     Indication: Drug use disorder
     Dosage: 300 MILLIGRAM, QMO
     Route: 065
     Dates: start: 20210420
  2. SUBLOCADE [Suspect]
     Active Substance: BUPRENORPHINE
     Indication: Pain
  3. SUBOXONE [Suspect]
     Active Substance: BUPRENORPHINE HYDROCHLORIDE\NALOXONE HYDROCHLORIDE
     Indication: Drug use disorder
     Dosage: 8 MILLIGRAM, QD
     Route: 065
     Dates: start: 202101
  4. SUBOXONE [Suspect]
     Active Substance: BUPRENORPHINE HYDROCHLORIDE\NALOXONE HYDROCHLORIDE
     Indication: Pain
     Dosage: 8 MILLIGRAM, TID
     Route: 065
  5. DEPO-PROVERA [Concomitant]
     Active Substance: MEDROXYPROGESTERONE ACETATE
     Indication: Menstrual cycle management
     Dosage: UNK
     Route: 065

REACTIONS (3)
  - Miliaria [Recovering/Resolving]
  - Pruritus [Recovering/Resolving]
  - Inappropriate schedule of product administration [Recovered/Resolved]

NARRATIVE: CASE EVENT DATE: 20210422
